FAERS Safety Report 4281984-1 (Version None)
Quarter: 2004Q1

REPORT INFORMATION
  Report Type: 
  Country: None (occurrence: None)
  Receive Date: 20040129
  Receipt Date: 20040105
  Transmission Date: 20041129
  Serious: Yes (Hospitalization)
  Sender: FDA-Public Use
  Company Number: PHEH2004US00461

PATIENT
  Age: 49 Year
  Sex: Female
  Weight: 67 kg

DRUGS (7)
  1. AREDIA [Suspect]
     Indication: MULTIPLE MYELOMA
     Dosage: 90 MG, Q4WKS
     Dates: start: 20010701
  2. VIOXX [Concomitant]
     Dates: start: 20010101
  3. SYNTHROID [Concomitant]
  4. VALIUM [Concomitant]
  5. THALIDOMIDE [Concomitant]
     Dates: start: 20031212
  6. ZOLOFT [Concomitant]
     Dosage: 100 MG, QHS
  7. WELLBUTRIN SR [Concomitant]
     Dosage: 150 MG, QD

REACTIONS (24)
  - ABDOMINAL PAIN [None]
  - ANAEMIA [None]
  - ANOREXIA [None]
  - BIOPSY KIDNEY [None]
  - BLOOD ALBUMIN DECREASED [None]
  - BLOOD CREATININE INCREASED [None]
  - BLOOD IMMUNOGLOBULIN G INCREASED [None]
  - BLOOD UREA INCREASED [None]
  - FATIGUE [None]
  - FEELING ABNORMAL [None]
  - HYPERTENSION [None]
  - LETHARGY [None]
  - MALIGNANT NEOPLASM PROGRESSION [None]
  - NEPHROLITHIASIS [None]
  - NEPHROTIC SYNDROME [None]
  - OEDEMA [None]
  - OEDEMA PERIPHERAL [None]
  - PROTEINURIA [None]
  - PURPURA [None]
  - RENAL FAILURE [None]
  - SKIN LESION [None]
  - URINARY CASTS [None]
  - URINE ABNORMALITY [None]
  - URINE ANALYSIS ABNORMAL [None]
